FAERS Safety Report 13702540 (Version 2)
Quarter: 2017Q3

REPORT INFORMATION
  Report Type: Report from Study
  Country: FR (occurrence: FR)
  Receive Date: 20170629
  Receipt Date: 20170719
  Transmission Date: 20171127
  Serious: Yes (Other)
  Sender: FDA-Public Use
  Company Number: PHHO2015FR016896

PATIENT
  Age: 69 Year
  Sex: Male
  Weight: 68 kg

DRUGS (6)
  1. ELTROMBOPAG [Suspect]
     Active Substance: ELTROMBOPAG
     Indication: THROMBOCYTOPENIA
     Dosage: 50 MG, QD
     Route: 048
     Dates: start: 20141031, end: 20141113
  2. HYDREA [Concomitant]
     Active Substance: HYDROXYUREA
     Indication: HYPERLEUKOCYTOSIS
     Dosage: 1 G, UNK
     Route: 048
     Dates: start: 20150225, end: 20151218
  3. ELTROMBOPAG [Suspect]
     Active Substance: ELTROMBOPAG
     Indication: CHRONIC MYELOMONOCYTIC LEUKAEMIA
     Dosage: 100 MG, QD
     Route: 048
     Dates: start: 20141003, end: 20141021
  4. TOPALGIC (SUPROFEN) [Concomitant]
     Active Substance: SUPROFEN
     Indication: PAIN
     Dosage: 200 MG, UNK
     Route: 048
  5. VALIUM [Concomitant]
     Active Substance: DIAZEPAM
     Indication: PROPHYLAXIS
     Dosage: 10 MG, UNK
     Route: 048
  6. ELTROMBOPAG [Suspect]
     Active Substance: ELTROMBOPAG
     Dosage: 250 MG, QD
     Route: 048
     Dates: start: 20141212, end: 20150108

REACTIONS (1)
  - Myeloblast count increased [Recovered/Resolved]

NARRATIVE: CASE EVENT DATE: 20141223
